FAERS Safety Report 20161756 (Version 1)
Quarter: 2021Q4

REPORT INFORMATION
  Report Type: Spontaneous
  Country: CN (occurrence: None)
  Receive Date: 20211208
  Receipt Date: 20211208
  Transmission Date: 20220303
  Serious: Yes (Hospitalization)
  Sender: FDA-Public Use
  Company Number: CN-Eisai Medical Research-EC-2021-104327

PATIENT
  Age: 48 Year
  Sex: Female
  Weight: 50.5 kg

DRUGS (4)
  1. HALAVEN [Suspect]
     Active Substance: ERIBULIN MESYLATE
     Indication: Colon neoplasm
     Route: 041
     Dates: start: 20211108, end: 20211115
  2. HALAVEN [Suspect]
     Active Substance: ERIBULIN MESYLATE
     Indication: Leiomyoma
  3. LENVIMA [Suspect]
     Active Substance: LENVATINIB
     Indication: Colon neoplasm
     Route: 048
     Dates: start: 20211108
  4. LENVIMA [Suspect]
     Active Substance: LENVATINIB
     Indication: Leiomyoma

REACTIONS (3)
  - Pyrexia [Recovered/Resolved]
  - White blood cell count decreased [Recovering/Resolving]
  - Neutrophil count decreased [Recovering/Resolving]

NARRATIVE: CASE EVENT DATE: 20211119
